FAERS Safety Report 24283103 (Version 2)
Quarter: 2025Q1

REPORT INFORMATION
  Report Type: Spontaneous
  Country: US (occurrence: US)
  Receive Date: 20240904
  Receipt Date: 20250306
  Transmission Date: 20250408
  Serious: Yes (Other)
  Sender: TEVA
  Company Number: US-TEVA-VS-3237575

PATIENT
  Age: 76 Year
  Sex: Female

DRUGS (1)
  1. AUSTEDO [Suspect]
     Active Substance: DEUTETRABENAZINE
     Indication: Tardive dyskinesia
     Route: 065

REACTIONS (5)
  - Bronchitis chronic [Not Recovered/Not Resolved]
  - Product dose omission issue [Unknown]
  - Intercepted product prescribing error [Unknown]
  - Rhinorrhoea [Not Recovered/Not Resolved]
  - Sputum increased [Not Recovered/Not Resolved]
